FAERS Safety Report 5163091-9 (Version None)
Quarter: 2006Q4

REPORT INFORMATION
  Report Type: 
  Country: None (occurrence: None)
  Receive Date: 20061201
  Receipt Date: 20061121
  Transmission Date: 20070319
  Serious: Yes (Hospitalization)
  Sender: FDA-Public Use
  Company Number: DE-ABBOTT-06P-062-0351211-00

PATIENT
  Sex: Male
  Weight: 29.4 kg

DRUGS (5)
  1. KLACID [Suspect]
     Indication: COUGH
     Route: 048
     Dates: start: 20060501, end: 20060501
  2. KLACID [Suspect]
     Indication: PNEUMONIA MYCOPLASMAL
     Route: 042
     Dates: start: 20060601, end: 20060601
  3. CYCLOSPORINE [Suspect]
     Indication: IMMUNOSUPPRESSANT DRUG THERAPY
     Route: 048
     Dates: start: 20050201
  4. CYCLOSPORINE [Suspect]
     Indication: GLOMERULONEPHROPATHY
     Route: 048
     Dates: start: 20060601
  5. CEFOTIAM HYDROCHLORIDE [Concomitant]
     Indication: PNEUMONIA MYCOPLASMAL
     Route: 042
     Dates: start: 20060620, end: 20060629

REACTIONS (7)
  - ABDOMINAL PAIN UPPER [None]
  - BLOOD CREATININE INCREASED [None]
  - DRUG LEVEL INCREASED [None]
  - GENERAL PHYSICAL HEALTH DETERIORATION [None]
  - HYPERKALAEMIA [None]
  - PYREXIA [None]
  - VOMITING [None]
